FAERS Safety Report 14650679 (Version 2)
Quarter: 2018Q3

REPORT INFORMATION
  Report Type: Spontaneous
  Country: EG (occurrence: IR)
  Receive Date: 20180316
  Receipt Date: 20180814
  Transmission Date: 20181010
  Serious: Yes (Other)
  Sender: FDA-Public Use
  Company Number: EG-SA-2018SA063793

PATIENT
  Age: 63 Year
  Sex: Male
  Weight: 100 kg

DRUGS (4)
  1. ASA [Concomitant]
     Active Substance: ASPIRIN
     Indication: ANGIOGRAM
     Dosage: 1 DF,QD
     Route: 048
     Dates: start: 20180218
  2. ROSUVASTATIN. [Concomitant]
     Active Substance: ROSUVASTATIN
     Indication: BLOOD CHOLESTEROL
     Dosage: UNK UNK,UNK
     Route: 048
  3. PLAVIX [Suspect]
     Active Substance: CLOPIDOGREL BISULFATE
     Indication: ANGIOGRAM
     Dosage: 2 DF,QD
     Route: 048
     Dates: start: 20180218
  4. DILTIAZEM. [Concomitant]
     Active Substance: DILTIAZEM
     Indication: BLOOD CHOLESTEROL
     Dosage: UNK UNK,UNK
     Route: 048

REACTIONS (5)
  - Angina pectoris [Recovered/Resolved]
  - Anaemia [Recovered/Resolved]
  - Urticaria [Recovered/Resolved]
  - Dizziness [Recovered/Resolved]
  - Decreased appetite [Recovered/Resolved]

NARRATIVE: CASE EVENT DATE: 20180220
